FAERS Safety Report 9433216 (Version 1)
Quarter: 2013Q3

REPORT INFORMATION
  Report Type: Spontaneous
  Country: IT (occurrence: IT)
  Receive Date: 20130731
  Receipt Date: 20130731
  Transmission Date: 20140515
  Serious: Yes (Hospitalization)
  Sender: FDA-Public Use
  Company Number: PHHY2013IT079664

PATIENT
  Age: 50 Year
  Sex: Female

DRUGS (7)
  1. METFORMIN [Suspect]
     Indication: SUICIDE ATTEMPT
     Dosage: 10000 MG, ONCE/SINGLE
     Route: 048
     Dates: start: 20130615, end: 20130615
  2. DEPAKIN CHRONO [Suspect]
     Indication: SUICIDE ATTEMPT
     Dosage: 6000 MG, ONCE/SINGLE
     Route: 048
     Dates: start: 20130615, end: 20130615
  3. TACHIPIRINA [Suspect]
     Indication: SUICIDE ATTEMPT
     Dosage: 5000 MG, ONCE/SINGLE
     Route: 048
     Dates: start: 20130615, end: 20130615
  4. MOMENT [Suspect]
     Indication: SUICIDE ATTEMPT
     Dosage: 2400 MG, ONCE/SINGLE
     Route: 048
     Dates: start: 20130615, end: 20130615
  5. MOMENTACT [Suspect]
     Indication: SUICIDE ATTEMPT
     Dosage: 4800 MG, ONCE/SINGLE
     Route: 048
     Dates: start: 20130615, end: 20130615
  6. ENANTYUM [Suspect]
     Indication: SUICIDE ATTEMPT
     Dosage: 1000 MG, ONCE/SINGLE
     Route: 048
     Dates: start: 20130615, end: 20130615
  7. ZERINOL [Suspect]
     Indication: SUICIDE ATTEMPT
     Dosage: 6000 MG, ONCE/SINGLE
     Route: 048
     Dates: start: 20130615, end: 20130615

REACTIONS (3)
  - Aphasia [Unknown]
  - Suicide attempt [Unknown]
  - Sopor [Unknown]
